FAERS Safety Report 13975443 (Version 1)
Quarter: 2017Q3

REPORT INFORMATION
  Report Type: Report from Study
  Country: NL (occurrence: NL)
  Receive Date: 20170915
  Receipt Date: 20170915
  Transmission Date: 20171128
  Serious: Yes (Hospitalization, Other)
  Sender: FDA-Public Use
  Company Number: NL-CELGENEUS-NLD-2016020057

PATIENT
  Age: 9 Year
  Sex: Female

DRUGS (1)
  1. AZACITIDINE INJECTABLE [Suspect]
     Active Substance: AZACITIDINE
     Indication: MYELODYSPLASTIC SYNDROME
     Route: 041
     Dates: start: 20151215, end: 20160128

REACTIONS (7)
  - Erythema nodosum [Recovered/Resolved]
  - Pulmonary haemosiderosis [Recovered/Resolved]
  - Febrile neutropenia [Recovered/Resolved]
  - Erythema nodosum [Recovered/Resolved]
  - Pyrexia [Recovered/Resolved]
  - Splenomegaly [Not Recovered/Not Resolved]
  - Pulmonary haemosiderosis [Recovered/Resolved]

NARRATIVE: CASE EVENT DATE: 20160101
